FAERS Safety Report 12992416 (Version 1)
Quarter: 2016Q4

REPORT INFORMATION
  Report Type: Spontaneous
  Country: FR (occurrence: FR)
  Receive Date: 20161202
  Receipt Date: 20161202
  Transmission Date: 20170207
  Serious: Yes (Life-Threatening, Hospitalization)
  Sender: FDA-Public Use
  Company Number: FR-ROCHE-1862065

PATIENT
  Age: 78 Year
  Sex: Female

DRUGS (12)
  1. ZOLPIDEM [Concomitant]
     Active Substance: ZOLPIDEM\ZOLPIDEM TARTRATE
  2. ADENURIC [Concomitant]
     Active Substance: FEBUXOSTAT
  3. UVEDOSE [Concomitant]
     Active Substance: CHOLECALCIFEROL
  4. PARIET [Concomitant]
     Active Substance: RABEPRAZOLE SODIUM
     Route: 065
  5. TOVIAZ [Concomitant]
     Active Substance: FESOTERODINE FUMARATE
  6. ACUPAN [Concomitant]
     Active Substance: NEFOPAM HYDROCHLORIDE
  7. KAYEXALATE [Concomitant]
     Active Substance: SODIUM POLYSTYRENE SULFONATE
  8. EUPRESSYL [Concomitant]
     Active Substance: URAPIDIL
     Route: 065
  9. LEXOMIL [Concomitant]
     Active Substance: BROMAZEPAM
  10. ROCEPHINE [Suspect]
     Active Substance: CEFTRIAXONE SODIUM
     Indication: BRONCHOPNEUMOPATHY
     Route: 058
     Dates: start: 201610, end: 201610
  11. PROFENID [Suspect]
     Active Substance: KETOPROFEN
     Indication: SINUSITIS
     Route: 048
     Dates: start: 201610, end: 201610
  12. LEVOTHYROX [Concomitant]
     Active Substance: LEVOTHYROXINE
     Route: 065

REACTIONS (3)
  - Posterior reversible encephalopathy syndrome [Recovering/Resolving]
  - Acute kidney injury [Recovered/Resolved]
  - Malignant hypertension [Recovered/Resolved]

NARRATIVE: CASE EVENT DATE: 20161024
